FAERS Safety Report 8167462-8 (Version None)
Quarter: 2012Q1

REPORT INFORMATION
  Report Type: 
  Country: None (occurrence: None)
  Receive Date: 20120227
  Receipt Date: 20120216
  Transmission Date: 20120608
  Serious: Yes (Death)
  Sender: FDA-Public Use
  Company Number: US-PFIZER INC-2005128506

PATIENT
  Age: 62 Year

DRUGS (3)
  1. ISOSORBIDE DINITRATE [Suspect]
     Indication: ILL-DEFINED DISORDER
     Route: 065
  2. GABAPENTIN [Suspect]
     Indication: ILL-DEFINED DISORDER
     Route: 048
  3. ALCOHOL [Suspect]
     Indication: ILL-DEFINED DISORDER
     Route: 065

REACTIONS (1)
  - COMPLETED SUICIDE [None]
